FAERS Safety Report 5242346-3 (Version None)
Quarter: 2007Q1

REPORT INFORMATION
  Report Type: 
  Country: None (occurrence: None)
  Receive Date: 20070216
  Receipt Date: 20070216
  Transmission Date: 20070707
  Serious: Yes (Hospitalization)
  Sender: FDA-Public Use
  Company Number: None

PATIENT
  Age: 64 Year
  Sex: Male

DRUGS (7)
  1. METOLAZONE [Suspect]
     Indication: DIURETIC THERAPY
     Dosage: 5 MG BID
     Dates: start: 20040301
  2. BUMETANIDE [Suspect]
     Indication: DIURETIC THERAPY
     Dosage: 1 MG QD
     Dates: start: 20060701
  3. SPIRONOLACTONE [Suspect]
     Dosage: 100 MG BID
     Dates: start: 20060101
  4. LACTULOSE [Concomitant]
  5. MG OXIDE [Concomitant]
  6. SENOKOT [Concomitant]
  7. NITROGLYCERIN [Concomitant]

REACTIONS (1)
  - HYPOTENSION [None]
